FAERS Safety Report 17563546 (Version 3)
Quarter: 2020Q2

REPORT INFORMATION
  Report Type: Report from Study
  Country: US (occurrence: US)
  Receive Date: 20200319
  Receipt Date: 20200430
  Transmission Date: 20200713
  Serious: Yes (Death, Other)
  Sender: FDA-Public Use
  Company Number: US-AGIOS-2003US01724

PATIENT

DRUGS (2)
  1. TIBSOVO [Suspect]
     Active Substance: IVOSIDENIB
     Indication: ACUTE LYMPHOCYTIC LEUKAEMIA
     Dosage: 250 MILLIGRAM, 2 TABLETS, QD
     Route: 048
     Dates: start: 20191120, end: 20200227
  2. TIBSOVO [Suspect]
     Active Substance: IVOSIDENIB
     Indication: ACUTE MYELOID LEUKAEMIA

REACTIONS (3)
  - Off label use [Recovered/Resolved]
  - Blast cell count increased [Unknown]
  - Disease progression [Fatal]

NARRATIVE: CASE EVENT DATE: 20191120
